FAERS Safety Report 7241111-5 (Version None)
Quarter: 2011Q1

REPORT INFORMATION
  Report Type: 
  Country: None (occurrence: None)
  Receive Date: 20110120
  Receipt Date: 20110120
  Transmission Date: 20110831
  Serious: Yes (Life-Threatening)
  Sender: FDA-Public Use
  Company Number: None

PATIENT
  Age: 78 Year
  Sex: Female
  Weight: 63.9572 kg

DRUGS (1)
  1. ULTRAM [Suspect]
     Indication: PAIN IN EXTREMITY
     Dosage: 50 MG 2 TIME DAILY PO
     Route: 048
     Dates: start: 20101025, end: 20110108

REACTIONS (15)
  - DELUSION [None]
  - PAIN [None]
  - ARTHRITIS [None]
  - WITHDRAWAL SYNDROME [None]
  - BALANCE DISORDER [None]
  - WEIGHT DECREASED [None]
  - FALL [None]
  - NAUSEA [None]
  - FIBROMYALGIA [None]
  - DEMENTIA [None]
  - BLOOD CALCIUM INCREASED [None]
  - OSTEOPOROSIS [None]
  - TREMOR [None]
  - HALLUCINATIONS, MIXED [None]
  - VOMITING [None]
